FAERS Safety Report 15398559 (Version 1)
Quarter: 2018Q3

REPORT INFORMATION
  Report Type: Spontaneous
  Country: FR (occurrence: FR)
  Receive Date: 20180918
  Receipt Date: 20180918
  Transmission Date: 20181010
  Serious: Yes (Other)
  Sender: FDA-Public Use
  Company Number: PHHY2018FR076230

PATIENT
  Age: 59 Year
  Sex: Male
  Weight: 108 kg

DRUGS (8)
  1. TOBI PODHALER [Suspect]
     Active Substance: TOBRAMYCIN
     Indication: LUNG INFECTION
     Dosage: 2 DF, BID (2 CAPSULES IN THE MORNING AND 2 CAPSULES IN THE EVENING)
     Route: 055
     Dates: start: 20180604, end: 20180615
  2. TOBI PODHALER [Suspect]
     Active Substance: TOBRAMYCIN
     Indication: PSEUDOMONAS INFECTION
     Dosage: 4 DF, BID (4 CAPSULES IN THE MORNING AND 4 CAPSULES IN THE EVENING)
     Route: 055
     Dates: start: 20180601, end: 20180604
  3. SYMBICORT [Concomitant]
     Active Substance: BUDESONIDE\FORMOTEROL FUMARATE DIHYDRATE
     Indication: ASTHMA
     Dosage: 2 DF, BID
     Route: 048
     Dates: start: 20070101
  4. TOBI PODHALER [Suspect]
     Active Substance: TOBRAMYCIN
     Dosage: UNK UNK, ONCE/SINGLE
     Route: 055
     Dates: start: 20180616, end: 20180630
  5. SPIRIVA [Concomitant]
     Active Substance: TIOTROPIUM BROMIDE MONOHYDRATE
     Indication: ASTHMA
     Dosage: UNK UNK, ONCE/SINGLE
     Route: 048
     Dates: start: 20070401
  6. ATROVENT [Concomitant]
     Active Substance: IPRATROPIUM BROMIDE
     Indication: ASTHMA
     Dosage: 2 ML, PRN
     Route: 065
     Dates: start: 20070101
  7. TOBI PODHALER [Suspect]
     Active Substance: TOBRAMYCIN
     Dosage: UNK UNK, ONCE/SINGLE
     Route: 055
     Dates: start: 201808
  8. BRICANYL [Concomitant]
     Active Substance: TERBUTALINE SULFATE
     Indication: ASTHMA
     Dosage: UNK UNK, PRN
     Route: 065
     Dates: start: 20070101

REACTIONS (6)
  - Tendon pain [Recovered/Resolved]
  - Pain in extremity [Recovered/Resolved]
  - Dyspnoea [Recovered/Resolved]
  - Myalgia [Recovered/Resolved]
  - Axillary pain [Recovered/Resolved]
  - Chest pain [Recovered/Resolved]

NARRATIVE: CASE EVENT DATE: 20180603
